FAERS Safety Report 9482775 (Version 1)
Quarter: 2013Q3

REPORT INFORMATION
  Report Type: Spontaneous
  Country: US (occurrence: US)
  Receive Date: 20130828
  Receipt Date: 20130828
  Transmission Date: 20140515
  Serious: Yes (Hospitalization, Other)
  Sender: FDA-Public Use
  Company Number: US-AMGEN-USASP2013060004

PATIENT
  Age: 62 Year
  Sex: Male

DRUGS (1)
  1. ENBREL [Suspect]
     Indication: RHEUMATOID ARTHRITIS
     Dosage: 50 MG, QWK
     Route: 065
     Dates: start: 20030801

REACTIONS (5)
  - Speech disorder [Recovered/Resolved]
  - Mobility decreased [Recovered/Resolved]
  - Throat cancer [Recovered/Resolved]
  - Heart rate irregular [Recovered/Resolved]
  - Nerve compression [Not Recovered/Not Resolved]
